FAERS Safety Report 16883050 (Version 1)
Quarter: 2019Q4

REPORT INFORMATION
  Report Type: Report from Study
  Country: US (occurrence: US)
  Receive Date: 20191004
  Receipt Date: 20191004
  Transmission Date: 20200122
  Serious: Yes (Hospitalization)
  Sender: FDA-Public Use
  Company Number: US-SA-2019SA232218

PATIENT
  Age: 24 Year
  Sex: Male

DRUGS (2)
  1. ALEMTUZUMAB [Suspect]
     Active Substance: ALEMTUZUMAB
     Indication: MULTIPLE SCLEROSIS
     Dosage: 12 MG, QD
     Route: 041
     Dates: start: 20190812, end: 20190814
  2. DIPHENHYDRAMINE HYDROCHLORIDE. [Suspect]
     Active Substance: DIPHENHYDRAMINE HYDROCHLORIDE
     Dosage: 20 MG, 1X
     Route: 042
     Dates: start: 20190815

REACTIONS (7)
  - Drug hypersensitivity [Unknown]
  - Headache [Unknown]
  - Magnetic resonance imaging brain abnormal [Unknown]
  - Diplopia [Unknown]
  - Blood pressure increased [Unknown]
  - Vision blurred [Unknown]
  - Vascular occlusion [Unknown]

NARRATIVE: CASE EVENT DATE: 20190815
